FAERS Safety Report 13752220 (Version 1)
Quarter: 2017Q3

REPORT INFORMATION
  Report Type: Spontaneous
  Country: US (occurrence: US)
  Receive Date: 20170713
  Receipt Date: 20170713
  Transmission Date: 20171127
  Serious: No
  Sender: FDA-Public Use
  Company Number: US-JAZZ-2017-US-006140

PATIENT
  Sex: Female

DRUGS (24)
  1. ACTIVELLA [Concomitant]
     Active Substance: ESTRADIOL\NORETHINDRONE ACETATE
  2. BONIVA [Concomitant]
     Active Substance: IBANDRONATE SODIUM
  3. MEDROL [Concomitant]
     Active Substance: METHYLPREDNISOLONE
  4. PROVIGIL [Concomitant]
     Active Substance: MODAFINIL
  5. LIPITOR [Concomitant]
     Active Substance: ATORVASTATIN CALCIUM
  6. BENICAR [Concomitant]
     Active Substance: OLMESARTAN MEDOXOMIL
  7. CALCIUM [Concomitant]
     Active Substance: CALCIUM
  8. TYLENOL EXTRA STRENGTH [Concomitant]
     Active Substance: ACETAMINOPHEN
  9. HCTZ [Concomitant]
     Active Substance: HYDROCHLOROTHIAZIDE
  10. CELEBREX [Concomitant]
     Active Substance: CELECOXIB
  11. ESTRACE [Concomitant]
     Active Substance: ESTRADIOL
  12. FISH OIL CONCENTRATE [Concomitant]
     Active Substance: FISH OIL
  13. NUVIGIL [Concomitant]
     Active Substance: ARMODAFINIL
  14. UBIQUINOL [Concomitant]
     Active Substance: UBIQUINOL
  15. POTASSIUM CITRATE. [Concomitant]
     Active Substance: POTASSIUM CITRATE
  16. MIMVEY [Concomitant]
     Active Substance: ESTRADIOL\NORETHINDRONE ACETATE
  17. XYREM [Suspect]
     Active Substance: SODIUM OXYBATE
     Dosage: DOSE ADJUSTMENT
     Route: 048
     Dates: start: 200809, end: 2014
  18. XYREM [Suspect]
     Active Substance: SODIUM OXYBATE
     Dosage: 4.5G, BID
     Route: 048
     Dates: start: 201412
  19. HYDROCHLOROTHIAZIDE. [Concomitant]
     Active Substance: HYDROCHLOROTHIAZIDE
  20. RITALIN [Concomitant]
     Active Substance: METHYLPHENIDATE HYDROCHLORIDE
  21. XYREM [Suspect]
     Active Substance: SODIUM OXYBATE
     Indication: NARCOLEPSY
     Dosage: 4.5G, BID
     Route: 048
     Dates: start: 200511, end: 2005
  22. ASPIRIN                            /00002701/ [Concomitant]
     Active Substance: ASPIRIN
  23. DAYPRO [Concomitant]
     Active Substance: OXAPROZIN
  24. ZOVIRAX [Concomitant]
     Active Substance: ACYCLOVIR

REACTIONS (3)
  - Therapeutic response decreased [Unknown]
  - Stress [Unknown]
  - Extra dose administered [Unknown]
